FAERS Safety Report 24703009 (Version 1)
Quarter: 2024Q4

REPORT INFORMATION
  Report Type: Spontaneous
  Country: PL (occurrence: PL)
  Receive Date: 20241205
  Receipt Date: 20241205
  Transmission Date: 20250115
  Serious: Yes (Hospitalization)
  Sender: MYLAN
  Company Number: None

PATIENT
  Age: 87 Year
  Sex: Female

DRUGS (14)
  1. ISOPTIN [Suspect]
     Active Substance: VERAPAMIL HYDROCHLORIDE
     Indication: Myocardial ischaemia
     Dosage: 1 DOSAGE FORM, BID
     Route: 065
  2. HYDROCHLOROTHIAZIDE\VALSARTAN [Suspect]
     Active Substance: HYDROCHLOROTHIAZIDE\VALSARTAN
     Indication: Hypertension
     Dosage: 1 DOSAGE FORM
     Route: 048
  3. SPIRONOLACTONE [Suspect]
     Active Substance: SPIRONOLACTONE
     Indication: Cardiac failure congestive
     Dosage: 100 MILLIGRAM, QD (UNDER THE CONTROL OF AN IONOGRAM)
     Route: 065
  4. ACETAMINOPHEN\TRAMADOL HYDROCHLORIDE [Suspect]
     Active Substance: ACETAMINOPHEN\TRAMADOL HYDROCHLORIDE
     Indication: Analgesic therapy
     Dosage: AD HOC IN CASE OF PAIN UP TO 3 TABLETS
     Route: 065
  5. BUDESONIDE\FORMOTEROL [Concomitant]
     Active Substance: BUDESONIDE\FORMOTEROL
     Indication: Asthma
     Dosage: 1 DOSAGE FORM, BID (160 UG +4.5 UG)
     Route: 048
  6. VENTOLIN [Concomitant]
     Active Substance: ALBUTEROL SULFATE
     Indication: Asthma
     Dosage: 100 MICROGRAM/DOSE, USE AD-HOC IN CASE OF DYSPNOEA1-2 DOSE
     Route: 065
  7. CONTROLOC [Concomitant]
     Active Substance: PANTOPRAZOLE SODIUM
     Indication: Chronic gastritis
     Dosage: 1 DOSAGE FORM
     Route: 065
  8. ROSUVASTATIN CALCIUM [Concomitant]
     Active Substance: ROSUVASTATIN CALCIUM
     Indication: Arteriosclerosis
     Dosage: 1 DOSAGE FORM
     Route: 065
  9. VINPOCETINE [Concomitant]
     Active Substance: VINPOCETINE
     Indication: Cerebrovascular disorder
     Dosage: 1 DOSAGE FORM, Q8H
     Route: 065
  10. DROTAVERINE HYDROCHLORIDE [Concomitant]
     Active Substance: DROTAVERINE HYDROCHLORIDE
     Indication: Abdominal pain
     Dosage: 1 DOSAGE FORM (AD HOC IN BELLY ACHE)
     Route: 065
  11. WARFARIN [Concomitant]
     Active Substance: WARFARIN
     Indication: Thrombosis prophylaxis
     Dosage: UNDER INR CONTROL
     Route: 065
  12. ZYRTEC [Concomitant]
     Active Substance: CETIRIZINE HYDROCHLORIDE
     Indication: Hypersensitivity
     Dosage: UNK
     Route: 065
  13. HEPAREGEN [Concomitant]
     Indication: Hepatomegaly
     Dosage: UNK
     Route: 065
  14. DUSPATALIN RETARD [Concomitant]
     Indication: Diverticulum intestinal
     Dosage: UNK
     Route: 065

REACTIONS (3)
  - Fall [Recovering/Resolving]
  - Femoral neck fracture [Recovering/Resolving]
  - Presbyastasis [Recovering/Resolving]

NARRATIVE: CASE EVENT DATE: 20200911
